FAERS Safety Report 7229770-4 (Version None)
Quarter: 2011Q1

REPORT INFORMATION
  Report Type: 
  Country: None (occurrence: None)
  Receive Date: 20110117
  Receipt Date: 20110111
  Transmission Date: 20110831
  Serious: Yes (Other)
  Sender: FDA-Public Use
  Company Number: BR-PFIZER INC-2011006777

PATIENT
  Age: 44 Year
  Sex: Female
  Weight: 57 kg

DRUGS (2)
  1. DEPO-PROVERA [Suspect]
     Indication: MENSTRUAL DISCOMFORT
  2. DEPO-PROVERA [Suspect]
     Indication: OFF LABEL USE
     Dosage: 150 MG, UNK
     Route: 030
     Dates: start: 20070101

REACTIONS (2)
  - UTERINE LEIOMYOMA [None]
  - UTERINE HAEMORRHAGE [None]
